FAERS Safety Report 11420143 (Version 6)
Quarter: 2015Q3

REPORT INFORMATION
  Report Type: Spontaneous
  Country: US (occurrence: US)
  Receive Date: 20150826
  Receipt Date: 20150921
  Transmission Date: 20151125
  Serious: Yes (Hospitalization, Other)
  Sender: FDA-Public Use
  Company Number: US-GLAXOSMITHKLINE-US2015GSK121225

PATIENT
  Age: 74 Year
  Sex: Male
  Weight: 94.3 kg

DRUGS (2)
  1. GENTAMICIN. [Concomitant]
     Active Substance: GENTAMICIN
  2. MUPIROCIN CALCIUM CREAM [Suspect]
     Active Substance: MUPIROCIN CALCIUM
     Indication: WOUND TREATMENT
     Dosage: 1 DF, QD AND PRN
     Route: 061
     Dates: start: 20150703, end: 20150801

REACTIONS (5)
  - Abdominal pain [Unknown]
  - Peritonitis [Recovered/Resolved]
  - Suspected transmission of an infectious agent via product [Unknown]
  - Drug administration error [Recovered/Resolved]
  - Catheter site infection [Unknown]

NARRATIVE: CASE EVENT DATE: 20150703
